FAERS Safety Report 9275804 (Version 2)
Quarter: 2013Q3

REPORT INFORMATION
  Report Type: Spontaneous
  Country: US (occurrence: US)
  Receive Date: 20130507
  Receipt Date: 20130912
  Transmission Date: 20140515
  Serious: Yes (Hospitalization)
  Sender: FDA-Public Use
  Company Number: US-JNJFOC-20130215748

PATIENT
  Sex: Female
  Weight: 93.6 kg

DRUGS (13)
  1. TOPAMAX [Suspect]
     Indication: EPILEPSY
     Route: 048
     Dates: start: 200908, end: 201005
  2. TOPAMAX [Suspect]
     Indication: EPILEPSY
     Route: 048
     Dates: start: 200811, end: 200905
  3. TOPIRAMATE [Suspect]
     Indication: CONVULSION
     Route: 065
  4. ONDANSETRON [Suspect]
     Indication: PRODUCT USED FOR UNKNOWN INDICATION
     Route: 048
  5. DOCQLACE [Suspect]
     Indication: PRODUCT USED FOR UNKNOWN INDICATION
     Route: 048
  6. NITROFURANTOIN MACRO [Suspect]
     Indication: PRODUCT USED FOR UNKNOWN INDICATION
     Route: 048
  7. PROMETHEGAN [Suspect]
     Indication: PRODUCT USED FOR UNKNOWN INDICATION
     Route: 054
  8. METOCLOPRAMIDE [Suspect]
     Indication: PRODUCT USED FOR UNKNOWN INDICATION
     Route: 048
  9. PROMETHAZINE [Suspect]
     Indication: PRODUCT USED FOR UNKNOWN INDICATION
     Route: 048
  10. PROMETHAZINE [Suspect]
     Indication: PRODUCT USED FOR UNKNOWN INDICATION
     Route: 048
  11. PRENATAL VITAMINS [Concomitant]
     Indication: PREGNANCY
     Route: 065
  12. FOLIC ACID [Concomitant]
     Route: 065
  13. POTASSIUM [Concomitant]
     Route: 048

REACTIONS (6)
  - Exposure during pregnancy [Recovered/Resolved]
  - Convulsion [Unknown]
  - Hyperemesis gravidarum [Unknown]
  - Sedation [Unknown]
  - Paraesthesia [Unknown]
  - Emotional disorder [Unknown]
